FAERS Safety Report 14021607 (Version 1)
Quarter: 2017Q3

REPORT INFORMATION
  Report Type: Spontaneous
  Country: CA (occurrence: CA)
  Receive Date: 20170928
  Receipt Date: 20170928
  Transmission Date: 20171128
  Serious: Yes (Other)
  Sender: FDA-Public Use
  Company Number: CA-TEVA-811060USA

PATIENT
  Age: 37 Year
  Sex: Male

DRUGS (5)
  1. MOMETASONE [Concomitant]
     Active Substance: MOMETASONE
     Indication: TRICHODYSPLASIA SPINULOSA
     Route: 065
  2. LEFLUNOMIDE. [Suspect]
     Active Substance: LEFLUNOMIDE
     Indication: TRICHODYSPLASIA SPINULOSA
     Dosage: 20MG DAILY FOR 3 MONTHS AND LATER DISCONTINUED
     Route: 048
  3. CICLOSPORIN [Suspect]
     Active Substance: CYCLOSPORINE
     Indication: IMMUNOSUPPRESSANT DRUG THERAPY
     Dosage: 100MG MORNING, 75MG IN EVENING
     Route: 065
  4. LEFLUNOMIDE. [Suspect]
     Active Substance: LEFLUNOMIDE
     Indication: TRICHODYSPLASIA SPINULOSA
     Dosage: 40MG DAILY FOR 1 MONTH FOLLOWED BY 20MG
     Route: 048
  5. LEFLUNOMIDE. [Suspect]
     Active Substance: LEFLUNOMIDE
     Indication: TRICHODYSPLASIA SPINULOSA
     Dosage: 100MG DAILY FOR 5 DAYS FOLLOWED BY 40MG DOSE
     Route: 048

REACTIONS (3)
  - Trichodysplasia spinulosa [Recovered/Resolved]
  - Human polyomavirus infection [Recovered/Resolved]
  - Liver function test abnormal [Recovered/Resolved]
